FAERS Safety Report 9482822 (Version 3)
Quarter: 2013Q3

REPORT INFORMATION
  Report Type: Report from Study
  Country: US (occurrence: US)
  Receive Date: 20130828
  Receipt Date: 20130909
  Transmission Date: 20140515
  Serious: Yes (Hospitalization)
  Sender: FDA-Public Use
  Company Number: US-ACTELION-A-NJ2013-86220

PATIENT
  Age: 69 Year
  Sex: Female

DRUGS (1)
  1. TRACLEER [Suspect]
     Indication: PULMONARY ARTERIAL HYPERTENSION
     Dosage: UNK
     Route: 048
     Dates: start: 2012

REACTIONS (5)
  - Cardiac pacemaker insertion [Recovering/Resolving]
  - Aortic valve replacement [Unknown]
  - Aortic valve stenosis [Unknown]
  - Dyspnoea exertional [Unknown]
  - Atrioventricular block complete [Recovering/Resolving]
